FAERS Safety Report 8881898 (Version 2)
Quarter: 2013Q2

REPORT INFORMATION
  Report Type: Spontaneous
  Country: US (occurrence: US)
  Receive Date: 20121102
  Receipt Date: 20130624
  Transmission Date: 20140414
  Serious: Yes (Disabling)
  Sender: FDA-Public Use
  Company Number: CHPA2012US020916

PATIENT
  Age: 89 Year
  Sex: Female

DRUGS (1)
  1. TRANSDERM SCOP [Suspect]
     Indication: VERTIGO
     Dosage: 1 PATCH
     Route: 062
     Dates: start: 20120928, end: 20121001

REACTIONS (9)
  - Gait disturbance [Recovered/Resolved]
  - Balance disorder [Not Recovered/Not Resolved]
  - Pruritus [Recovered/Resolved]
  - Insomnia [Recovered/Resolved]
  - Scratch [Recovered/Resolved]
  - Application site pruritus [Recovered/Resolved]
  - Feeling abnormal [Recovered/Resolved]
  - Skin irritation [Recovered/Resolved]
  - Dizziness [Recovered/Resolved]
